FAERS Safety Report 5297476-7 (Version None)
Quarter: 2007Q2

REPORT INFORMATION
  Report Type: 
  Country: None (occurrence: None)
  Receive Date: 20070416
  Receipt Date: 20070404
  Transmission Date: 20071010
  Serious: Yes (Life-Threatening)
  Sender: FDA-Public Use
  Company Number: JP-PURDUE-MAG_2007_0000523

PATIENT
  Age: 79 Year
  Sex: Male

DRUGS (18)
  1. OXYCODONE HCL [Suspect]
     Indication: CANCER PAIN
     Dosage: 5 MG, BID
     Route: 048
     Dates: start: 20050526, end: 20050527
  2. OXYCODONE HCL [Suspect]
     Dosage: 5 MG, TID
     Route: 048
     Dates: start: 20050528, end: 20050529
  3. OXYCODONE HCL [Suspect]
     Dosage: 10 MG, BID
     Route: 048
     Dates: start: 20050530, end: 20050531
  4. OXYCODONE HCL [Suspect]
     Dosage: 15 MG, BID
     Route: 048
     Dates: start: 20050601, end: 20050609
  5. OXYCODONE HCL [Suspect]
     Dosage: 30 MG, BID
     Route: 048
     Dates: start: 20050610, end: 20050613
  6. OXYCODONE HCL [Suspect]
     Dosage: 40 MG, BID
     Route: 048
     Dates: start: 20050614, end: 20050623
  7. OXYCODONE HCL [Suspect]
     Dosage: 40 MG, TID
     Route: 048
     Dates: start: 20050624, end: 20050625
  8. MORPHINE [Suspect]
     Indication: CANCER PAIN
     Dosage: 10 MG, DAILY
     Route: 048
     Dates: start: 20050610, end: 20050625
  9. MORPHINE [Suspect]
     Dosage: 5 MG, DAILY
     Route: 048
     Dates: start: 20050530, end: 20050610
  10. LENDORMIN [Suspect]
     Indication: INSOMNIA
     Dosage: .25 MG, DAILY
     Route: 048
     Dates: start: 20050604, end: 20050607
  11. YODEL [Concomitant]
     Indication: CONSTIPATION PROPHYLAXIS
     Dosage: 80 MG, DAILY
     Route: 048
     Dates: start: 20050526, end: 20050625
  12. ALENDRONATE SODIUM [Concomitant]
     Indication: PROSTATE CANCER
     Dosage: 5 MG, DAILY
     Route: 048
     Dates: start: 20050325, end: 20050625
  13. DEXAMETHASONE [Concomitant]
     Indication: CANCER PAIN
     Dosage: .5 MG, DAILY
     Route: 048
     Dates: start: 20050530, end: 20050625
  14. RITALIN [Concomitant]
     Indication: SOMNOLENCE
     Dosage: 10 MG, DAILY
     Route: 048
     Dates: start: 20050530, end: 20050625
  15. FAROPENEM [Concomitant]
     Indication: PROPHYLAXIS URINARY TRACT INFECTION
     Dosage: 450 MG, DAILY
     Route: 048
     Dates: start: 20050526, end: 20050625
  16. LOXONIN [Concomitant]
     Indication: CANCER PAIN
     Dosage: 180 MG, DAILY
     Route: 048
     Dates: start: 20050325, end: 20050625
  17. MUCOSTA [Concomitant]
     Indication: PROPHYLAXIS AGAINST GASTROINTESTINAL ULCER
     Dosage: 300 MG, DAILY
     Route: 048
     Dates: start: 20050325, end: 20050625
  18. VOLTAREN-XR [Concomitant]
     Indication: CANCER PAIN
     Dosage: 50 MG, DAILY
     Route: 054
     Dates: start: 20050513, end: 20050609

REACTIONS (4)
  - DELIRIUM [None]
  - MIDDLE INSOMNIA [None]
  - PNEUMONIA [None]
  - SOMNOLENCE [None]
